FAERS Safety Report 11821422 (Version 3)
Quarter: 2016Q1

REPORT INFORMATION
  Report Type: Spontaneous
  Country: US (occurrence: US)
  Receive Date: 20151210
  Receipt Date: 20160111
  Transmission Date: 20160525
  Serious: Yes (Hospitalization, Other)
  Sender: FDA-Public Use
  Company Number: US-PFIZER INC-2015424887

PATIENT
  Age: 14 Year
  Sex: Male
  Weight: 56.74 kg

DRUGS (30)
  1. TEMSIROLIMUS [Suspect]
     Active Substance: TEMSIROLIMUS
     Indication: ACUTE LYMPHOCYTIC LEUKAEMIA
     Dosage: 12 MG, UNK (2 IN 1 TOTAL)
     Route: 042
     Dates: start: 20151115, end: 20151121
  2. BISACODYL. [Concomitant]
     Active Substance: BISACODYL
     Indication: CONSTIPATION
     Dosage: 10 MG, ONE TIME DAILY (2 TABLETS OF 5MG EACH AT BEDTIME)
     Route: 048
     Dates: start: 20151104, end: 20151121
  3. DOCUSATE [Concomitant]
     Active Substance: DOCUSATE
     Indication: CONSTIPATION
     Dosage: 100 MG, TWICE DAILY (100 MG,2 IN 1 D)
     Route: 048
     Dates: start: 20141230, end: 20151122
  4. OLANZAPINE. [Concomitant]
     Active Substance: OLANZAPINE
     Indication: ANXIETY
     Dosage: 2.5 MG, EVERY 24 HOURS
     Route: 048
     Dates: start: 20151122, end: 201511
  5. ALLOPURINOL. [Concomitant]
     Active Substance: ALLOPURINOL
     Indication: PROPHYLAXIS
     Dosage: 3.3 MG/KG, 3X/DAY (EVERY 8 HOURS)
     Route: 048
     Dates: start: 20151113, end: 20151122
  6. ONDANSETRON [Concomitant]
     Active Substance: ONDANSETRON
     Indication: NAUSEA
     Dosage: 20 MG, AS NEEDED (20 MG,1 IN 1 AS REQUIRED)
     Route: 042
     Dates: start: 20151113
  7. CYCLOPHOSPHAMIDE. [Suspect]
     Active Substance: CYCLOPHOSPHAMIDE
     Indication: ACUTE LYMPHOCYTIC LEUKAEMIA
     Dosage: 700 MG, DAILY (1 IN 1 D)
     Route: 042
     Dates: start: 20151114, end: 20151118
  8. CHOLECALCIFEROL [Concomitant]
     Active Substance: CHOLECALCIFEROL
     Dosage: 1000 IU, 1X/DAY (1 IN 1 D)
     Route: 048
     Dates: start: 20151020, end: 20151122
  9. LEVOFLOXACIN. [Concomitant]
     Active Substance: LEVOFLOXACIN
     Indication: INFECTION PROPHYLAXIS
     Dosage: 500 MG, DAILY
     Route: 048
     Dates: start: 20151122, end: 20151122
  10. DRONABINOL. [Concomitant]
     Active Substance: DRONABINOL
     Dosage: 2.5 MG, 2X/DAY
     Route: 048
     Dates: start: 20151028
  11. CETRIZINE [Concomitant]
     Active Substance: CETIRIZINE HYDROCHLORIDE
     Indication: ANTIALLERGIC THERAPY
     Dosage: 10 MG, ONCE DAILY AS NEEDED
     Route: 048
     Dates: start: 20151007, end: 20151122
  12. MIRTAZAPINE. [Concomitant]
     Active Substance: MIRTAZAPINE
     Indication: ANXIETY
     Dosage: 3.75 MG, EVERY 48 HOURS
     Route: 048
     Dates: start: 20150909, end: 20151120
  13. OMEPRAZOLE. [Concomitant]
     Active Substance: OMEPRAZOLE
     Indication: GASTROOESOPHAGEAL REFLUX DISEASE
     Dosage: 20 MG, DAILY
     Route: 048
     Dates: start: 20150729, end: 20151122
  14. HYDROMORPHONE [Concomitant]
     Active Substance: HYDROMORPHONE
     Dosage: 2 MG,EVERY 4 HOURS PRN
     Route: 048
     Dates: start: 20151122, end: 20151122
  15. ONDANSETRON [Concomitant]
     Active Substance: ONDANSETRON
     Indication: VOMITING
     Dosage: 8 MG 3 TIMES PER DAY (EVERY 8 HOURS)
     Route: 048
     Dates: start: 20150708, end: 20151122
  16. RANITIDINE [Concomitant]
     Active Substance: RANITIDINE\RANITIDINE HYDROCHLORIDE
     Indication: GASTROOESOPHAGEAL REFLUX DISEASE
     Dosage: 150 MG (TWO 75MG TABLETS), TWICE DAILY
     Route: 048
     Dates: start: 20150817, end: 20151122
  17. SCOPOLAMINE [Concomitant]
     Active Substance: SCOPOLAMINE
     Indication: NAUSEA
     Dosage: 1.5 MG, EVERY 72 HOURS
     Route: 062
     Dates: start: 20151112, end: 20151122
  18. CHLORHEXIDINE /00133002/ [Concomitant]
     Dosage: UNK
     Dates: start: 20151119, end: 20151122
  19. COTRIMOXAZOLE [Concomitant]
     Active Substance: SULFAMETHOXAZOLE\TRIMETHOPRIM
     Dosage: 160 MG, 2X/DAY (EVERY MONDAY/TUESDAY)
     Route: 048
     Dates: start: 20150217
  20. CASPOFUNGIN [Concomitant]
     Active Substance: CASPOFUNGIN
     Indication: ANTIFUNGAL PROPHYLAXIS
     Dosage: 50 MG, 1X/DAY EVERY 24 HOURS
     Route: 042
     Dates: start: 20151114, end: 20151122
  21. LIDOCAINE. [Concomitant]
     Active Substance: LIDOCAINE
     Indication: PAIN
     Dosage: 5 ML, ONCE
     Route: 023
     Dates: start: 20151112, end: 20151112
  22. SCOPOLAMINE [Concomitant]
     Active Substance: SCOPOLAMINE
     Indication: VOMITING
     Dosage: 1.5 MG, UNK (EVERY 72 HOURS)
     Route: 062
     Dates: start: 20151124
  23. ZINC GLUCONATE [Concomitant]
     Active Substance: ZINC GLUCONATE
     Dosage: 50 MG, DAILY (1 IN 1 D)
     Route: 048
     Dates: start: 20151114, end: 20151121
  24. ETOPOSIDE. [Suspect]
     Active Substance: ETOPOSIDE
     Indication: ACUTE LYMPHOCYTIC LEUKAEMIA
     Dosage: 161.2 MG, DAILY (1 IN 1 D)
     Route: 042
     Dates: start: 20151114, end: 20151118
  25. LORAZEPAM. [Concomitant]
     Active Substance: LORAZEPAM
     Indication: ANXIETY
     Dosage: 1 MG ((1/2 OF 2MG TABLET) EVERY 6 HOURS PRN
     Route: 042
     Dates: start: 20151122, end: 20151122
  26. OXYCODONE [Concomitant]
     Active Substance: OXYCODONE
     Indication: PAIN
     Dosage: 5 MG, EVERY 6 HOURS PRN
     Route: 048
     Dates: start: 20151112
  27. BIOTIN [Concomitant]
     Active Substance: BIOTIN
     Dosage: 5 MG, 1X/DAY NIGHTLY
     Route: 048
     Dates: start: 20151104, end: 20151122
  28. HYDROMORPHONE [Concomitant]
     Active Substance: HYDROMORPHONE
     Indication: PAIN
     Dosage: 1 MG, EVERY 3 HOURS PRN
     Route: 042
     Dates: start: 20151112
  29. SENNOSIDES. [Concomitant]
     Active Substance: SENNOSIDES
     Dosage: 15 MG, 2X/DAY (FOR 5 DAYS)
     Route: 048
     Dates: start: 20151125, end: 20151130
  30. SIMETHICONE (DIMETHICONE) [Concomitant]
     Active Substance: DIMETHICONE
     Dosage: 40 MG, 4X/DAY (AS NEEDED)
     Route: 048
     Dates: start: 20150728

REACTIONS (17)
  - Hyponatraemia [Recovered/Resolved]
  - White blood cell count decreased [Not Recovered/Not Resolved]
  - Nausea [Not Recovered/Not Resolved]
  - Hepatomegaly [Unknown]
  - Gallbladder disorder [Unknown]
  - Hyperglycaemia [Recovered/Resolved]
  - Anaemia [Recovering/Resolving]
  - Epistaxis [Not Recovered/Not Resolved]
  - Abdominal pain [Recovering/Resolving]
  - Neutrophil count decreased [Not Recovered/Not Resolved]
  - Lymphocyte count decreased [Not Recovered/Not Resolved]
  - Hypotension [Not Recovered/Not Resolved]
  - Product use issue [Unknown]
  - Ascites [Unknown]
  - Hyponatraemia [Recovered/Resolved]
  - Fatigue [Not Recovered/Not Resolved]
  - Febrile neutropenia [Recovering/Resolving]

NARRATIVE: CASE EVENT DATE: 20151115
